FAERS Safety Report 10022760 (Version 1)
Quarter: 2014Q1

REPORT INFORMATION
  Report Type: Spontaneous
  Country: US (occurrence: US)
  Receive Date: 20140319
  Receipt Date: 20140319
  Transmission Date: 20141002
  Serious: Yes (Hospitalization, Other)
  Sender: FDA-Public Use
  Company Number: US-GILEAD-2014-0097182

PATIENT
  Sex: Female

DRUGS (14)
  1. LETAIRIS [Suspect]
     Indication: PRODUCT USED FOR UNKNOWN INDICATION
     Dosage: 10 MG, QD
     Route: 048
     Dates: start: 20140206
  2. ASPIRIN [Concomitant]
  3. MONTELUKAST [Concomitant]
  4. KLONOPIN [Concomitant]
  5. VALACYCLOVIR [Concomitant]
  6. FUROSEMIDE [Concomitant]
  7. ILOPROST [Concomitant]
  8. OMEPRAZOLE [Concomitant]
  9. DOLCOLATE SODIUM [Concomitant]
  10. ALBUTEROL                          /00139501/ [Concomitant]
  11. FOLIC ACID [Concomitant]
  12. METHADONE [Concomitant]
  13. SENNA LAXATIVE [Concomitant]
  14. HYDROXYUREA [Concomitant]

REACTIONS (1)
  - Sickle cell anaemia [Unknown]
